FAERS Safety Report 22184226 (Version 1)
Quarter: 2023Q2

REPORT INFORMATION
  Report Type: Spontaneous
  Country: US (occurrence: US)
  Receive Date: 20230407
  Receipt Date: 20230407
  Transmission Date: 20230721
  Serious: Yes (Hospitalization, Other)
  Sender: FDA-Public Use
  Company Number: US-BRISTOL-MYERS SQUIBB COMPANY-2023-046854

PATIENT
  Age: 84 Year
  Sex: Female

DRUGS (5)
  1. REVLIMID [Suspect]
     Active Substance: LENALIDOMIDE
     Indication: Plasma cell myeloma
     Route: 048
     Dates: start: 20230201
  2. BUMEX [Concomitant]
     Active Substance: BUMETANIDE
     Indication: Oedema
     Route: 048
     Dates: start: 20220809
  3. LORATADINE [Concomitant]
     Active Substance: LORATADINE
     Indication: Hypersensitivity
     Dosage: T QD
     Route: 048
     Dates: start: 20211217
  4. DEXAMETHASONE [Concomitant]
     Active Substance: DEXAMETHASONE
     Indication: Neoplasm malignant
     Dosage: FREQUENCY: EVERY WEDNESDAY
     Route: 048
     Dates: start: 20220916
  5. DOXYCYCLINE [Concomitant]
     Active Substance: DOXYCYCLINE
     Indication: Rash
     Dosage: T BID
     Route: 048
     Dates: start: 20220916

REACTIONS (1)
  - Pulmonary embolism [Recovered/Resolved]

NARRATIVE: CASE EVENT DATE: 20230301
